FAERS Safety Report 7807868-7 (Version None)
Quarter: 2011Q4

REPORT INFORMATION
  Report Type: 
  Country: None (occurrence: None)
  Receive Date: 20111011
  Receipt Date: 20110930
  Transmission Date: 20120403
  Serious: Yes (Hospitalization)
  Sender: FDA-Public Use
  Company Number: JP-AMGEN-JPNCT2010011108

PATIENT
  Age: 58 Year
  Sex: Male
  Weight: 61 kg

DRUGS (9)
  1. PANITUMUMAB [Suspect]
     Indication: COLORECTAL CANCER
     Dosage: 6 MG/KG, Q2WK
     Route: 041
     Dates: start: 20100909, end: 20100922
  2. PANITUMUMAB [Suspect]
     Dosage: 6 MG/KG, Q2WK
     Route: 041
     Dates: start: 20110310, end: 20110526
  3. BESOFTEN [Concomitant]
     Dosage: UNK
     Route: 062
  4. STIBRON [Concomitant]
     Route: 062
  5. LOCOID [Concomitant]
     Route: 062
  6. CLARITIN REDITABS [Concomitant]
     Route: 048
  7. MINOCYCLINE HYDROCHLORIDE [Concomitant]
     Route: 048
  8. PANITUMUMAB [Suspect]
     Dosage: 6 MG/KG, Q2WK
     Route: 041
     Dates: start: 20101115, end: 20110203
  9. RINDERON-V [Concomitant]
     Route: 062

REACTIONS (6)
  - CHOLANGITIS [None]
  - DERMATITIS ACNEIFORM [None]
  - HYPOKALAEMIA [None]
  - HYPOCALCAEMIA [None]
  - HYPOMAGNESAEMIA [None]
  - DRY SKIN [None]
